FAERS Safety Report 5269041-9 (Version None)
Quarter: 2007Q1

REPORT INFORMATION
  Report Type: 
  Country: None (occurrence: None)
  Receive Date: 20070319
  Receipt Date: 20070312
  Transmission Date: 20070707
  Serious: Yes (Other)
  Sender: FDA-Public Use
  Company Number: 2007GB00522

PATIENT
  Age: 24 Year
  Sex: Male

DRUGS (2)
  1. SEROQUEL [Suspect]
     Indication: SCHIZOPHRENIA
     Route: 048
     Dates: start: 20061201
  2. CITALOPRAM HYDROBROMIDE [Concomitant]
     Indication: ANXIETY

REACTIONS (3)
  - ERECTILE DYSFUNCTION [None]
  - SUICIDAL IDEATION [None]
  - SUICIDE ATTEMPT [None]
